FAERS Safety Report 17031138 (Version 1)
Quarter: 2019Q4

REPORT INFORMATION
  Report Type: Report from Study
  Country: US (occurrence: US)
  Receive Date: 20191114
  Receipt Date: 20191114
  Transmission Date: 20200122
  Serious: Yes (Other)
  Sender: FDA-Public Use
  Company Number: US-ROCHE-2465607

PATIENT
  Age: 65 Year
  Sex: Female
  Weight: 68.01 kg

DRUGS (26)
  1. SOTALOL AF [SOTALOL] [Concomitant]
     Indication: HYPERTENSION
     Dosage: STARTED ABOUT 5 YEARS AGO
     Route: 048
  2. HYDRALAZINE [Concomitant]
     Active Substance: HYDRALAZINE HYDROCHLORIDE
     Indication: HYPERTENSION
     Dosage: STARTED ABOUT 8 TO 10 YEARS AGO
     Route: 048
  3. DULOXETINE. [Concomitant]
     Active Substance: DULOXETINE
     Indication: ANXIETY
  4. COQ 10 [Concomitant]
     Active Substance: UBIDECARENONE
     Route: 048
  5. VITAMIN C [Concomitant]
     Active Substance: ASCORBIC ACID
     Dosage: DOUBLE DOSE IF SHE HAS A COLD
     Route: 048
  6. LOSARTAN. [Concomitant]
     Active Substance: LOSARTAN
     Indication: HYPERTENSION
     Dosage: STARTED ABOUT 8 TO 10 YEARS AGO
     Route: 048
  7. RANEXA [Concomitant]
     Active Substance: RANOLAZINE
     Indication: CHEST PAIN
     Dosage: STARTED ABOUT 8 YEARS AGO
     Route: 048
  8. METFORMIN [Concomitant]
     Active Substance: METFORMIN HYDROCHLORIDE
     Indication: DIABETES MELLITUS
     Route: 048
  9. MAGNESIUM [Concomitant]
     Active Substance: MAGNESIUM
     Indication: PAIN
     Dosage: STARTED ABOUT 2 YEARS AGO
     Route: 048
  10. DOXYLAMINE SUCCINATE. [Concomitant]
     Active Substance: DOXYLAMINE SUCCINATE
     Dosage: AT NIGHT STARTED 15 YEARS AGO
     Route: 048
  11. CRANBERRY [VACCINIUM SPP.] [Concomitant]
     Route: 048
  12. SOTALOL AF [SOTALOL] [Concomitant]
     Indication: ATRIAL FIBRILLATION
  13. DULOXETINE. [Concomitant]
     Active Substance: DULOXETINE
     Indication: PAIN
     Route: 048
  14. MELATONIN [Concomitant]
     Active Substance: MELATONIN
     Dosage: AT NIGHT
     Route: 048
  15. GABAPENTIN. [Concomitant]
     Active Substance: GABAPENTIN
     Indication: FIBROMYALGIA
     Dosage: STARTED 2 TO 3 YEARS AGO
     Route: 048
  16. GABAPENTIN. [Concomitant]
     Active Substance: GABAPENTIN
     Dosage: AT NIGHT
     Route: 048
  17. VITAMIN D3 [Concomitant]
     Active Substance: CHOLECALCIFEROL
     Route: 048
  18. TART CHERRY [Concomitant]
     Route: 048
  19. FISH OIL [Concomitant]
     Active Substance: FISH OIL
     Route: 048
  20. ZINC. [Concomitant]
     Active Substance: ZINC
     Route: 048
  21. OCREVUS [Suspect]
     Active Substance: OCRELIZUMAB
     Indication: PRIMARY PROGRESSIVE MULTIPLE SCLEROSIS
     Dosage: ONE DOSE ONLY ;ONGOING: YES
     Route: 042
     Dates: start: 20191011
  22. ELIQUIS [Concomitant]
     Active Substance: APIXABAN
     Indication: ATRIAL FIBRILLATION
     Dosage: STARTED ABOUT 5 YEARS AGO
     Route: 048
  23. TOUJEO [Concomitant]
     Active Substance: INSULIN GLARGINE
     Indication: DIABETES MELLITUS
     Dosage: STARTED ABOUT 1 YEAR AGO
     Route: 058
  24. POTASSIUM [Concomitant]
     Active Substance: POTASSIUM
     Indication: BLOOD POTASSIUM DECREASED
     Route: 048
  25. LINZESS [Concomitant]
     Active Substance: LINACLOTIDE
     Indication: CONSTIPATION
     Dosage: STARTED ABOUT 1 YEAR AGO
     Route: 048
  26. MECLIZINE [Concomitant]
     Active Substance: MECLIZINE HYDROCHLORIDE
     Indication: DIZZINESS
     Route: 048

REACTIONS (3)
  - Oral herpes [Recovered/Resolved]
  - Cystitis [Recovering/Resolving]
  - Headache [Recovered/Resolved]

NARRATIVE: CASE EVENT DATE: 20191011
